FAERS Safety Report 9036300 (Version 1)
Quarter: 2013Q1

REPORT INFORMATION
  Report Type: Report from Study
  Country: US (occurrence: US)
  Receive Date: 20130129
  Receipt Date: 20130129
  Transmission Date: 20140127
  Serious: No
  Sender: FDA-Public Use
  Company Number: US-ABBOTT-12P-163-0890526-00

PATIENT
  Age: 55 Year
  Sex: Female

DRUGS (16)
  1. HUMIRA 40 MG/0.8 ML PEN [Suspect]
     Indication: PSORIATIC ARTHROPATHY
     Dates: start: 201110
  2. NEURONTIN [Concomitant]
     Indication: TRIGEMINAL NEURALGIA
     Route: 048
  3. LISINOPRIL [Concomitant]
     Indication: HYPERTENSION
     Route: 048
  4. ATENOLOL [Concomitant]
     Indication: HYPERTENSION
     Route: 048
  5. HYDROXYZINE [Concomitant]
     Indication: PRURITUS
     Dosage: 10 MG - ONCE EVERY 6 HOURS AS NEEDED
  6. ALLEGRA [Concomitant]
     Indication: SYSTEMIC LUPUS ERYTHEMATOSUS
     Route: 048
  7. HYDROXYCHLOROQUINE [Concomitant]
     Indication: SYSTEMIC LUPUS ERYTHEMATOSUS
     Route: 048
  8. METHOTREXATE [Concomitant]
     Indication: PRODUCT USED FOR UNKNOWN INDICATION
     Dosage: 2.5 MG - FOUR TABLETS TWO TIMES WEEK
     Route: 048
  9. ALEVE [Concomitant]
     Indication: PAIN
  10. TYLENOL [Concomitant]
     Indication: PAIN
  11. DESIPRAMINE [Concomitant]
     Indication: SLEEP DISORDER
     Route: 048
  12. ASA [Concomitant]
     Indication: CARDIAC DISORDER
     Route: 048
  13. MVI [Concomitant]
     Indication: ROUTINE HEALTH MAINTENANCE
     Route: 048
  14. FISH OIL [Concomitant]
     Indication: ROUTINE HEALTH MAINTENANCE
     Route: 048
  15. CALCIUM +D [Concomitant]
     Indication: ROUTINE HEALTH MAINTENANCE
     Route: 048
  16. BETAMETHASONE [Concomitant]
     Indication: PSORIASIS

REACTIONS (2)
  - Injection site pain [Not Recovered/Not Resolved]
  - Onychomycosis [Not Recovered/Not Resolved]
